FAERS Safety Report 10623437 (Version 2)
Quarter: 2014Q4

REPORT INFORMATION
  Report Type: Report from Study
  Country: US (occurrence: US)
  Receive Date: 20141203
  Receipt Date: 20141217
  Transmission Date: 20150529
  Serious: Yes (Other)
  Sender: FDA-Public Use
  Company Number: US-BRISTOL-MYERS SQUIBB COMPANY-21665211

PATIENT
  Age: 50 Year
  Sex: Male
  Weight: 57 kg

DRUGS (18)
  1. DIPHENHYDRAMINE [Concomitant]
     Active Substance: DIPHENHYDRAMINE
  2. MELATONIN [Concomitant]
     Active Substance: MELATONIN
  3. LORAZEPAM. [Concomitant]
     Active Substance: LORAZEPAM
  4. VITAMIN D3 [Concomitant]
     Active Substance: CHOLECALCIFEROL
  5. MELATONIN [Concomitant]
     Active Substance: MELATONIN
  6. LOPERAMIDE [Concomitant]
     Active Substance: LOPERAMIDE
  7. NIVOLUMAB [Suspect]
     Active Substance: NIVOLUMAB
     Indication: GLIOBLASTOMA MULTIFORME
     Dosage: 3 MG/KG, Q2WK
     Route: 042
     Dates: start: 20140801
  8. TYLENOL [Concomitant]
     Active Substance: ACETAMINOPHEN
  9. VITAMIN B12 [Concomitant]
     Active Substance: CYANOCOBALAMIN
  10. KETOCONAZOLE. [Concomitant]
     Active Substance: KETOCONAZOLE
  11. KEPPRA [Concomitant]
     Active Substance: LEVETIRACETAM
  12. BACTRIM DS [Concomitant]
     Active Substance: SULFAMETHOXAZOLE\TRIMETHOPRIM
  13. LEVETIRACETAM. [Concomitant]
     Active Substance: LEVETIRACETAM
  14. SERTRALINE [Concomitant]
     Active Substance: SERTRALINE HYDROCHLORIDE
  15. PREDNISONE. [Concomitant]
     Active Substance: PREDNISONE
  16. PROTONIX [Concomitant]
     Active Substance: PANTOPRAZOLE SODIUM
  17. IPILIMUMAB [Suspect]
     Active Substance: IPILIMUMAB
     Indication: GLIOBLASTOMA MULTIFORME
     Dosage: 1 MG/KG, Q3WK
     Route: 042
     Dates: start: 20140801, end: 20140802
  18. SIMETHICONE [Concomitant]
     Active Substance: DIMETHICONE\SILICON DIOXIDE\SIMETHICONE

REACTIONS (1)
  - Fall [Recovered/Resolved]

NARRATIVE: CASE EVENT DATE: 20141124
